FAERS Safety Report 19414509 (Version 3)
Quarter: 2022Q2

REPORT INFORMATION
  Report Type: Report from Study
  Country: CO (occurrence: CO)
  Receive Date: 20210614
  Receipt Date: 20220610
  Transmission Date: 20220721
  Serious: Yes (Hospitalization, Other)
  Sender: FDA-Public Use
  Company Number: CO-TAKEDA-2021TUS036970

PATIENT
  Age: 59 Year
  Sex: Female
  Weight: 42 kg

DRUGS (1)
  1. VEDOLIZUMAB [Suspect]
     Active Substance: VEDOLIZUMAB
     Indication: Crohn^s disease
     Dosage: 300 MILLIGRAM
     Route: 042
     Dates: start: 20200501

REACTIONS (2)
  - COVID-19 [Unknown]
  - Colectomy [Unknown]

NARRATIVE: CASE EVENT DATE: 20210518
